FAERS Safety Report 12270126 (Version 1)
Quarter: 2016Q2

REPORT INFORMATION
  Report Type: Spontaneous
  Country: US (occurrence: US)
  Receive Date: 20160415
  Receipt Date: 20160415
  Transmission Date: 20160815
  Serious: Yes (Other)
  Sender: FDA-Public Use
  Company Number: US-CIPLA LTD.-2016US03628

PATIENT

DRUGS (9)
  1. ZIDOVUDINE. [Suspect]
     Active Substance: ZIDOVUDINE
     Indication: PROPHYLAXIS AGAINST HIV INFECTION
     Dosage: UNK
     Route: 065
  2. NEVIRAPINE. [Suspect]
     Active Substance: NEVIRAPINE
     Indication: PROPHYLAXIS AGAINST HIV INFECTION
     Dosage: UNK
     Route: 065
  3. ZIDOVUDINE. [Suspect]
     Active Substance: ZIDOVUDINE
     Dosage: LOADING DOSE OF 2 MG/KG FOLLOWED BY A CONTINUOUS INFUSION OF 1 MG/KG (SECOND PREGNANCY)
     Route: 042
  4. LAMIVUDINE. [Suspect]
     Active Substance: LAMIVUDINE
     Indication: PROPHYLAXIS AGAINST HIV INFECTION
     Dosage: UNK
     Route: 065
  5. NELFINAVIR [Suspect]
     Active Substance: NELFINAVIR
     Indication: PROPHYLAXIS AGAINST HIV INFECTION
     Dosage: UNK
     Route: 065
  6. ZIDOVUDINE. [Suspect]
     Active Substance: ZIDOVUDINE
     Dosage: LOADING DOSE OF 2 MG/KG FOLLOWED BY A CONTINUOUS INFUSION OF 1 MG/KG (FIRST PREGNANCY)
     Route: 042
  7. ATAZANAVIR [Suspect]
     Active Substance: ATAZANAVIR
     Indication: PROPHYLAXIS AGAINST HIV INFECTION
     Dosage: 300 MG, QD
     Route: 065
  8. TENOFOVIR/EMTRICITABINE [Suspect]
     Active Substance: EMTRICITABINE\TENOFOVIR
     Indication: PROPHYLAXIS AGAINST HIV INFECTION
     Dosage: 300/200 MG, QD
     Route: 065
  9. RITONAVIR. [Suspect]
     Active Substance: RITONAVIR
     Indication: PROPHYLAXIS AGAINST HIV INFECTION
     Dosage: 100 MG, QD
     Route: 065

REACTIONS (8)
  - Premature rupture of membranes [Unknown]
  - Exposure during pregnancy [Unknown]
  - Premature delivery [Unknown]
  - Caesarean section [Unknown]
  - Treatment noncompliance [Unknown]
  - Drug resistance [Unknown]
  - Blood HIV RNA increased [Unknown]
  - Preterm premature rupture of membranes [Unknown]
